FAERS Safety Report 5132781-6 (Version None)
Quarter: 2006Q4

REPORT INFORMATION
  Report Type: 
  Country: None (occurrence: None)
  Receive Date: 20061023
  Receipt Date: 20060526
  Transmission Date: 20070319
  Serious: Yes (Death, Life-Threatening, Hospitalization)
  Sender: FDA-Public Use
  Company Number: US-BRISTOL-MYERS SQUIBB COMPANY-13392758

PATIENT
  Age: 56 Year
  Sex: Male
  Weight: 51 kg

DRUGS (3)
  1. CETUXIMAB [Suspect]
     Indication: SQUAMOUS CELL CARCINOMA
     Dosage: INITIATED ON 04-APR-2006 AT 400 MG/M2 F/B 250 MG/M2 WEEKLY X 9 WEEKS/TOTL DOSE THIS COURSE = 400 MG.
     Dates: start: 20060523, end: 20060523
  2. CISPLATIN [Suspect]
     Indication: SQUAMOUS CELL CARCINOMA
     Dosage: ADMINISTERED ON WEEKS 3, 6, 9. TOTAL DOSE THIS COURSE = 0 MG.
     Dates: start: 20060509, end: 20060509
  3. RADIATION THERAPY [Suspect]
     Indication: SQUAMOUS CELL CARCINOMA
     Dosage: VIA EXTERNAL BEAM, 3D STARTING ON WEEK 3/TOTAL DOSE TO DATE = 3800 CGY/19 FRACTIONS/0 ELAPSED DAYS.
     Dates: start: 20060522, end: 20060522

REACTIONS (12)
  - BLOOD CREATININE INCREASED [None]
  - DYSPNOEA [None]
  - HAEMOGLOBIN DECREASED [None]
  - HYPOCALCAEMIA [None]
  - HYPOTENSION [None]
  - HYPOXIA [None]
  - INFECTION [None]
  - NEUTROPENIA [None]
  - NEUTROPHIL COUNT DECREASED [None]
  - PLATELET COUNT DECREASED [None]
  - PNEUMONIA [None]
  - WHITE BLOOD CELL COUNT DECREASED [None]
